FAERS Safety Report 7435637-9 (Version None)
Quarter: 2011Q2

REPORT INFORMATION
  Report Type: 
  Country: None (occurrence: None)
  Receive Date: 20110425
  Receipt Date: 20110401
  Transmission Date: 20111010
  Serious: No
  Sender: FDA-Public Use
  Company Number: US-MYLANLABS-2011S1005737

PATIENT
  Age: 61 Year
  Sex: Male

DRUGS (8)
  1. AMLODIPINE [Concomitant]
     Indication: RAYNAUD'S PHENOMENON
     Route: 048
     Dates: start: 20110201
  2. CLONIDINE [Suspect]
     Indication: BLOOD PRESSURE INCREASED
     Dosage: CHANGED QW
     Route: 062
     Dates: start: 20100101
  3. LISINOPRIL [Concomitant]
     Route: 048
  4. NEXIUM [Concomitant]
     Route: 048
  5. UROXATRAL [Concomitant]
     Indication: POLLAKIURIA
     Route: 048
     Dates: start: 20110101
  6. LIPITOR [Concomitant]
     Route: 048
  7. BUSPIRONE HCL [Concomitant]
     Route: 048
  8. DILTIAZEM [Concomitant]
     Route: 048

REACTIONS (6)
  - POLLAKIURIA [None]
  - HYPERTENSION [None]
  - PALPITATIONS [None]
  - HEART RATE IRREGULAR [None]
  - DRUG EFFECT DECREASED [None]
  - RAYNAUD'S PHENOMENON [None]
